FAERS Safety Report 9478759 (Version 1)
Quarter: 2013Q3

REPORT INFORMATION
  Report Type: Spontaneous
  Country: US (occurrence: None)
  Receive Date: 20130822
  Receipt Date: 20130822
  Transmission Date: 20140515
  Serious: Yes (Hospitalization)
  Sender: FDA-Public Use
  Company Number: SYM-2013-09309

PATIENT
  Age: 76 Year
  Sex: Female

DRUGS (3)
  1. 5 FU [Suspect]
     Indication: BREAST CANCER
     Dosage: EVERY 3 WEEKS
     Dates: start: 20010719, end: 20010719
  2. DOXORUBICIN [Suspect]
     Indication: BREAST CANCER
     Dosage: EVERY 3 WEEKS
     Dates: start: 20010719, end: 20010719
  3. CYCLOPHOSPHAMIDE [Suspect]
     Indication: BREAST CANCER
     Dosage: EVERY 3 WEEKS
     Dates: start: 20010719, end: 20010719

REACTIONS (1)
  - Cardiac failure congestive [None]
